FAERS Safety Report 8900630 (Version 2)
Quarter: 2012Q4

REPORT INFORMATION
  Report Type: 
  Country: JP (occurrence: JP)
  Receive Date: 20121109
  Receipt Date: 20121122
  Transmission Date: 20130627
  Serious: Yes (Other)
  Sender: FDA-Public Use
  Company Number: JP-ROCHE-1152337

PATIENT
  Age: 71 Year
  Sex: Male

DRUGS (2)
  1. KYTRIL [Suspect]
     Indication: PROPHYLAXIS
     Dosage: Three course end
     Route: 042
  2. GEMCITABINE HYDROCHLORIDE [Suspect]
     Indication: BILE DUCT CANCER
     Dosage: Dosage is uncertain. 
Three course end
     Route: 041

REACTIONS (1)
  - Convulsion [Recovering/Resolving]
